FAERS Safety Report 15591018 (Version 1)
Quarter: 2018Q4

REPORT INFORMATION
  Report Type: Spontaneous
  Country: US (occurrence: US)
  Receive Date: 20181107
  Receipt Date: 20181107
  Transmission Date: 20190205
  Serious: Yes (Hospitalization, Other)
  Sender: FDA-Public Use
  Company Number: US-GLAXOSMITHKLINE-US2018GSK200069

PATIENT
  Sex: Male

DRUGS (1)
  1. MEPRON [Suspect]
     Active Substance: ATOVAQUONE
     Indication: AUTOIMMUNE DISORDER
     Route: 048

REACTIONS (4)
  - Autoimmune disorder [Unknown]
  - Dialysis [Unknown]
  - Renal failure [Unknown]
  - Product use in unapproved indication [Unknown]
